FAERS Safety Report 9657773 (Version 1)
Quarter: 2013Q4

REPORT INFORMATION
  Report Type: Spontaneous
  Country: CA (occurrence: CA)
  Receive Date: 20131030
  Receipt Date: 20131030
  Transmission Date: 20140711
  Serious: Yes (Other)
  Sender: FDA-Public Use
  Company Number: CHPA2013CA016278

PATIENT
  Age: 35 Year
  Sex: Male

DRUGS (1)
  1. THRIVE GUM UNKNOWN [Suspect]
     Dosage: 2 OR 3 DF, UNK
     Route: 048

REACTIONS (2)
  - Intentional drug misuse [Unknown]
  - Incorrect dose administered [Unknown]
